FAERS Safety Report 9470674 (Version 1)
Quarter: 2013Q3

REPORT INFORMATION
  Report Type: Spontaneous
  Country: DE (occurrence: None)
  Receive Date: 20130815
  Receipt Date: 20130815
  Transmission Date: 20140515
  Serious: Yes (Death, Life-Threatening, Hospitalization, Disabling)
  Sender: FDA-Public Use
  Company Number: D0074392A

PATIENT
  Sex: Male
  Weight: 38.92 kg

DRUGS (10)
  1. ARRANON [Suspect]
     Indication: ACUTE LYMPHOCYTIC LEUKAEMIA
     Route: 042
     Dates: start: 20120106, end: 20120110
  2. ARRANON [Suspect]
     Indication: ACUTE LYMPHOCYTIC LEUKAEMIA
     Route: 042
     Dates: start: 20111224, end: 20111224
  3. ETOPOSIDE [Concomitant]
  4. MULTIPLE MEDICATION [Concomitant]
  5. METHOTREXATE [Concomitant]
  6. CYTARABINE [Concomitant]
  7. PREDNISOLONE [Concomitant]
  8. ETOPOSIDE [Concomitant]
  9. CYCLOPHOSPHAMIDE [Concomitant]
  10. MESNA [Concomitant]

REACTIONS (14)
  - Guillain-Barre syndrome [None]
  - Blindness [None]
  - Drug interaction [None]
  - Tumour lysis syndrome [None]
  - Neuralgia [None]
  - Neuropathy peripheral [None]
  - Hallucination [None]
  - Neurogenic bladder [None]
  - Coma [None]
  - Respiratory distress [None]
  - Cardiac arrest [None]
  - Grand mal convulsion [None]
  - Spinal cord disorder [None]
  - Necrosis [None]
